FAERS Safety Report 4355137-2 (Version None)
Quarter: 2004Q2

REPORT INFORMATION
  Report Type: 
  Country: None (occurrence: None)
  Receive Date: 20040510
  Receipt Date: 20040430
  Transmission Date: 20050107
  Serious: Yes (Death)
  Sender: FDA-Public Use
  Company Number: JP-BRISTOL-MYERS SQUIBB COMPANY-12575296

PATIENT
  Age: 38 Year
  Sex: Female

DRUGS (1)
  1. TAXOL [Suspect]
     Indication: BREAST CANCER
     Route: 042
     Dates: start: 20040330, end: 20040330

REACTIONS (1)
  - DISSEMINATED INTRAVASCULAR COAGULATION [None]
